FAERS Safety Report 5702365-7 (Version None)
Quarter: 2008Q2

REPORT INFORMATION
  Report Type: 
  Country: None (occurrence: None)
  Receive Date: 20080411
  Receipt Date: 20080404
  Transmission Date: 20081010
  Serious: Yes (Hospitalization, Other)
  Sender: FDA-Public Use
  Company Number: ES-GENENTECH-257894

PATIENT
  Sex: Male

DRUGS (1)
  1. RAPTIVA [Suspect]
     Indication: PSORIASIS
     Dosage: UNK, 1/WEEK
     Route: 058
     Dates: start: 20070815, end: 20080324

REACTIONS (2)
  - LUNG ADENOCARCINOMA [None]
  - METASTASES TO LUNG [None]
